FAERS Safety Report 5832129-5 (Version None)
Quarter: 2008Q3

REPORT INFORMATION
  Report Type: 
  Country: None (occurrence: None)
  Receive Date: 20080731
  Receipt Date: 20080731
  Transmission Date: 20090109
  Serious: Yes (Life-Threatening)
  Sender: FDA-Public Use
  Company Number: None

PATIENT
  Age: 71 Year
  Sex: Female
  Weight: 45.3597 kg

DRUGS (2)
  1. KLONOPIN [Suspect]
     Indication: NEOPLASM MALIGNANT
     Dosage: 6 PILLS PER DAY AS NEEDED PO
     Route: 048
  2. KLONOPIN [Suspect]
     Indication: SURGERY
     Dosage: 6 PILLS PER DAY AS NEEDED PO
     Route: 048

REACTIONS (1)
  - ECONOMIC PROBLEM [None]
